FAERS Safety Report 4316315-1 (Version None)
Quarter: 2004Q1

REPORT INFORMATION
  Report Type: 
  Country: None (occurrence: None)
  Receive Date: 20040311
  Receipt Date: 20040226
  Transmission Date: 20041129
  Serious: Yes (Death, Hospitalization)
  Sender: FDA-Public Use
  Company Number: 204497

PATIENT
  Age: 69 Year
  Sex: Male
  Weight: 81 kg

DRUGS (3)
  1. MABTHERA (RITUXIMAB) CONC FOR SOLUTION FOR INFUSION [Suspect]
     Indication: EXTRANODAL MARGINAL ZONE B-CELL LYMPHOMA (MALT TYPE)
     Dosage: 694 MG, 1/WEEK, INTRAVENOUS
     Route: 042
     Dates: start: 20031103, end: 20031203
  2. ROFERON-A [Suspect]
     Indication: EXTRANODAL MARGINAL ZONE B-CELL LYMPHOMA (MALT TYPE)
     Dosage: 3 MIU, QD, SUBCUTANEOUS
     Route: 058
     Dates: start: 20031027, end: 20031031
  3. ASPIRIN [Concomitant]

REACTIONS (4)
  - CARDIAC ARREST [None]
  - HAEMORRHAGE INTRACRANIAL [None]
  - PUPILLARY REFLEX IMPAIRED [None]
  - THROMBOTIC THROMBOCYTOPENIC PURPURA [None]
